FAERS Safety Report 5289137-5 (Version None)
Quarter: 2007Q1

REPORT INFORMATION
  Report Type: 
  Country: None (occurrence: None)
  Receive Date: 20070124
  Receipt Date: 20060815
  Transmission Date: 20070707
  Serious: Yes (Other)
  Sender: FDA-Public Use
  Company Number: US200606004511

PATIENT
  Age: 72 Year
  Sex: Female

DRUGS (5)
  1. EVISTA [Suspect]
     Indication: OSTEOPOROSIS
  2. FORTEO [Suspect]
     Indication: OSTEOPOROSIS
     Dates: start: 20060614
  3. FORTEO [Concomitant]
  4. CALCIUM (CALCIUM) [Concomitant]
  5. VITAMIN D [Concomitant]

REACTIONS (7)
  - BLOOD PRESSURE INCREASED [None]
  - DIZZINESS [None]
  - DRUG INEFFECTIVE [None]
  - DYSPNOEA [None]
  - HYPERSENSITIVITY [None]
  - RASH [None]
  - THROMBOSIS [None]
